FAERS Safety Report 10203587 (Version 2)
Quarter: 2014Q2

REPORT INFORMATION
  Report Type: Spontaneous
  Country: DE (occurrence: DE)
  Receive Date: 20140529
  Receipt Date: 20140611
  Transmission Date: 20141212
  Serious: Yes (Death, Hospitalization)
  Sender: FDA-Public Use
  Company Number: DE-JNJFOC-20140515930

PATIENT
  Age: 89 Year
  Sex: Female

DRUGS (12)
  1. XARELTO [Suspect]
     Indication: EMBOLISM VENOUS
     Route: 048
     Dates: end: 20140210
  2. XARELTO [Suspect]
     Indication: PULMONARY EMBOLISM
     Route: 048
     Dates: end: 20140210
  3. FENTANYL [Concomitant]
     Dosage: 50 G/H
     Route: 065
  4. SIMVASTATIN [Concomitant]
     Route: 065
  5. PANTOZOL [Concomitant]
     Route: 065
  6. BIFITERAL [Concomitant]
     Route: 065
  7. TORASEMID [Concomitant]
     Route: 065
  8. DELIX [Concomitant]
     Route: 065
  9. PREDNISOLON [Concomitant]
     Route: 065
  10. ALENDRONIC ACID [Concomitant]
     Route: 065
  11. CALCIVIT D [Concomitant]
     Route: 065
  12. THIAMAZOL [Concomitant]
     Route: 065

REACTIONS (4)
  - Death [Fatal]
  - Petechiae [Unknown]
  - Skin haemorrhage [Unknown]
  - Subcutaneous haematoma [Unknown]
